FAERS Safety Report 7733689-X (Version None)
Quarter: 2011Q3

REPORT INFORMATION
  Report Type: 
  Country: None (occurrence: None)
  Receive Date: 20110907
  Receipt Date: 20110901
  Transmission Date: 20111222
  Serious: Yes (Other)
  Sender: FDA-Public Use
  Company Number: US-SANOFI-AVENTIS-2011SA056285

PATIENT
  Sex: Male

DRUGS (2)
  1. RITUXAN [Concomitant]
     Indication: LYMPHOMA
  2. ELITEK [Suspect]
     Indication: LYMPHOMA
     Route: 042

REACTIONS (1)
  - THROMBOCYTOPENIA [None]
